FAERS Safety Report 5388961-8 (Version None)
Quarter: 2007Q3

REPORT INFORMATION
  Report Type: 
  Country: None (occurrence: None)
  Receive Date: 20070713
  Receipt Date: 20070713
  Transmission Date: 20080115
  Serious: Yes (Other)
  Sender: FDA-Public Use
  Company Number: None

PATIENT
  Sex: Female
  Weight: 93.441 kg

DRUGS (2)
  1. ZOFRAN [Suspect]
     Indication: ANTIEMETIC SUPPORTIVE CARE
     Dosage: 32MG X1 IV
     Route: 042
     Dates: start: 20070620
  2. ZOFRAN [Suspect]
     Indication: ANTIEMETIC SUPPORTIVE CARE
     Dosage: 32MG X1 IV
     Route: 042
     Dates: start: 20070712

REACTIONS (4)
  - ARTHRALGIA [None]
  - CHILLS [None]
  - DIARRHOEA [None]
  - INFUSION RELATED REACTION [None]
